FAERS Safety Report 26032720 (Version 1)
Quarter: 2025Q4

REPORT INFORMATION
  Report Type: Spontaneous
  Country: EU (occurrence: EU)
  Receive Date: 20251112
  Receipt Date: 20251112
  Transmission Date: 20260118
  Serious: Yes (Other)
  Sender: AUROBINDO
  Company Number: EU-MINISAL02-1064809

PATIENT
  Age: 7 Year
  Sex: Female
  Weight: 24 kg

DRUGS (2)
  1. LAMOTRIGINE [Interacting]
     Active Substance: LAMOTRIGINE
     Indication: Epilepsy
     Dosage: 75 MILLIGRAM (ASSUNTI 37.5 MG AL MATTINO + 37.5 MG ALLA SERA.DATA DI INIZIO TERAPIA ATTRIBUITA D^UFF
     Route: 048
  2. TEGRETOL [Interacting]
     Active Substance: CARBAMAZEPINE
     Indication: Epilepsy
     Dosage: 36 MILLILITER (ASSUNTI 12 ML ALLA MATTINA + 11 ML ALLE H12 + 13 ML ALLA SERA.DATA DI INIZIO TERAPIA
     Route: 048

REACTIONS (2)
  - Seizure [Recovered/Resolved]
  - Drug interaction [Recovered/Resolved]

NARRATIVE: CASE EVENT DATE: 20250604
